FAERS Safety Report 15202763 (Version 2)
Quarter: 2018Q3

REPORT INFORMATION
  Report Type: Spontaneous
  Country: GB (occurrence: GB)
  Receive Date: 20180726
  Receipt Date: 20180814
  Transmission Date: 20181010
  Serious: Yes (Death, Hospitalization, Other)
  Sender: FDA-Public Use
  Company Number: PHHY2018GB055499

PATIENT
  Age: 66 Year
  Sex: Male
  Weight: 91.2 kg

DRUGS (11)
  1. SULFASALAZINE. [Concomitant]
     Active Substance: SULFASALAZINE
     Indication: RHEUMATOID ARTHRITIS
     Dosage: 3 G, QD
     Route: 065
     Dates: start: 2006
  2. AMLODIPINE [Concomitant]
     Active Substance: AMLODIPINE BESYLATE
     Indication: CORONARY ARTERY BYPASS
     Dosage: 5 MG, QD
     Route: 065
  3. PREDNISOLONE. [Concomitant]
     Active Substance: PREDNISOLONE
     Indication: RHEUMATOID ARTHRITIS
     Dosage: 10 TO 15 MG, QD
     Route: 065
     Dates: start: 2006
  4. RISEDRONIC ACID [Concomitant]
     Active Substance: RISEDRONIC ACID
     Indication: RHEUMATOID ARTHRITIS
     Dosage: 35 MG, QW
     Route: 065
     Dates: start: 2006
  5. FOLIC ACID. [Concomitant]
     Active Substance: FOLIC ACID
     Indication: RHEUMATOID ARTHRITIS
     Dosage: 5 MG, QW
     Route: 065
     Dates: start: 2006
  6. CAPECITABINE. [Concomitant]
     Active Substance: CAPECITABINE
     Indication: COLORECTAL CANCER
     Dosage: UNK
     Route: 065
  7. OMEPRAZOLE. [Concomitant]
     Active Substance: OMEPRAZOLE
     Indication: PRODUCT USED FOR UNKNOWN INDICATION
     Dosage: 40 MG, QD
     Route: 065
     Dates: start: 2010
  8. METHOTREXATE. [Concomitant]
     Active Substance: METHOTREXATE
     Indication: RHEUMATOID ARTHRITIS
     Dosage: 15 TO 20 MG QW
     Route: 065
  9. SIMVASTATIN. [Concomitant]
     Active Substance: SIMVASTATIN
     Indication: CORONARY ARTERY BYPASS
     Dosage: 20 MG, QD
     Route: 065
     Dates: start: 2010
  10. OXALIPLATIN. [Suspect]
     Active Substance: OXALIPLATIN
     Indication: COLORECTAL CANCER
     Dosage: 280 MG, UNK
     Route: 042
     Dates: start: 20170818, end: 20171020
  11. ADCAL?D3 [Concomitant]
     Active Substance: CALCIUM CARBONATE\CHOLECALCIFEROL
     Indication: RHEUMATOID ARTHRITIS
     Dosage: 2 ?G/L, QD
     Route: 065
     Dates: start: 2006

REACTIONS (2)
  - Idiopathic pulmonary fibrosis [Fatal]
  - Pneumonia [None]

NARRATIVE: CASE EVENT DATE: 20171229
